FAERS Safety Report 4846536-0 (Version None)
Quarter: 2005Q4

REPORT INFORMATION
  Report Type: 
  Country: None (occurrence: None)
  Receive Date: 20051202
  Receipt Date: 20051118
  Transmission Date: 20060501
  Serious: Yes (Hospitalization, Other)
  Sender: FDA-Public Use
  Company Number: KII-2005-0019830

PATIENT
  Age: 63 Year
  Sex: Female

DRUGS (5)
  1. OXYCODONE HCL [Suspect]
     Indication: INTENTIONAL DRUG MISUSE
     Dosage: ORAL
     Route: 048
  2. ANTIFREEZE:  ETHYLENE GLYCOL [Suspect]
     Indication: INTENTIONAL DRUG MISUSE
     Dosage: ORAL
     Route: 048
  3. VALPROIC ACID [Suspect]
     Indication: INTENTIONAL DRUG MISUSE
     Dosage: ORAL
     Route: 048
  4. TRAMADOL HCL [Suspect]
     Indication: INTENTIONAL DRUG MISUSE
     Dosage: ORAL
     Route: 048
  5. TEGRETOL [Suspect]
     Indication: INTENTIONAL DRUG MISUSE
     Dosage: ORAL
     Route: 048

REACTIONS (16)
  - AMMONIA INCREASED [None]
  - BLOOD BICARBONATE DECREASED [None]
  - BLOOD CALCIUM DECREASED [None]
  - BLOOD OSMOLARITY INCREASED [None]
  - BLOOD PH DECREASED [None]
  - BLOOD POTASSIUM DECREASED [None]
  - BLOOD PRESSURE SYSTOLIC INCREASED [None]
  - DIALYSIS [None]
  - INTENTIONAL DRUG MISUSE [None]
  - METABOLIC ENCEPHALOPATHY [None]
  - MULTIPLE DRUG OVERDOSE [None]
  - OSMOLAR GAP ABNORMAL [None]
  - POLYSUBSTANCE ABUSE [None]
  - STUPOR [None]
  - URINE OUTPUT INCREASED [None]
  - VENTRICULAR EXTRASYSTOLES [None]
